FAERS Safety Report 17960331 (Version 1)
Quarter: 2020Q2

REPORT INFORMATION
  Report Type: Spontaneous
  Country: US (occurrence: US)
  Receive Date: 20200626
  Receipt Date: 20200626
  Transmission Date: 20200714
  Serious: Yes (Life-Threatening, Hospitalization)
  Sender: FDA-Public Use
  Company Number: None

PATIENT
  Age: 74 Year
  Sex: Male

DRUGS (1)
  1. DAPTOMYCIN (DAPTOMYCIN 25MG/VII INJ) [Suspect]
     Active Substance: DAPTOMYCIN
     Dosage: ?          OTHER STRENGTH:250 MG/VIL;?
     Route: 042
     Dates: start: 20191118, end: 20191204

REACTIONS (8)
  - Acute kidney injury [None]
  - Diarrhoea [None]
  - Ageusia [None]
  - Fatigue [None]
  - Hypophagia [None]
  - Loss of personal independence in daily activities [None]
  - Eosinophilic pneumonia [None]
  - Cough [None]

NARRATIVE: CASE EVENT DATE: 20191203
